FAERS Safety Report 9160128 (Version 2)
Quarter: 2013Q1

REPORT INFORMATION
  Report Type: Report from Study
  Country: PT (occurrence: PT)
  Receive Date: 20130313
  Receipt Date: 20130318
  Transmission Date: 20140127
  Serious: Yes (Death, Hospitalization, Other)
  Sender: FDA-Public Use
  Company Number: PT-PFIZER INC-2013081919

PATIENT
  Age: 82 Year
  Sex: Female

DRUGS (1)
  1. AMIODARONE HCL [Suspect]
     Dosage: UNK
     Route: 065

REACTIONS (3)
  - Hyperthyroidism [Fatal]
  - Acute coronary syndrome [Fatal]
  - Cardiac failure [Fatal]
